FAERS Safety Report 10235649 (Version 2)
Quarter: 2014Q2

REPORT INFORMATION
  Report Type: Spontaneous
  Country: FR (occurrence: FR)
  Receive Date: 20140613
  Receipt Date: 20140630
  Transmission Date: 20141212
  Serious: Yes (Life-Threatening, Other)
  Sender: FDA-Public Use
  Company Number: FR-ELI_LILLY_AND_COMPANY-FR201406003437

PATIENT
  Age: 58 Year
  Sex: Male

DRUGS (6)
  1. PEMETREXED [Suspect]
     Indication: LUNG ADENOCARCINOMA RECURRENT
     Dosage: 500 MG/M2, OTHER
     Route: 065
  2. CISPLATIN [Concomitant]
     Indication: LUNG ADENOCARCINOMA RECURRENT
     Dosage: 75 MG/M2, OTHER
     Route: 065
  3. APREPITANT [Concomitant]
     Dosage: 125 MG, OTHER
     Route: 048
  4. ONDANSETRON [Concomitant]
     Dosage: 8 MG, OTHER
     Route: 042
  5. METHYLPREDNISOLONE [Concomitant]
     Dosage: 120 MG, OTHER
     Route: 042
  6. PANTOPRAZOLE [Concomitant]
     Dosage: 40 MG, OTHER
     Route: 042

REACTIONS (1)
  - Anaphylactic shock [Recovered/Resolved]
